FAERS Safety Report 7806916-8 (Version None)
Quarter: 2011Q4

REPORT INFORMATION
  Report Type: 
  Country: None (occurrence: None)
  Receive Date: 20111011
  Receipt Date: 20111003
  Transmission Date: 20120403
  Serious: Yes (Other)
  Sender: FDA-Public Use
  Company Number: PHHY2011US88202

PATIENT

DRUGS (8)
  1. DOCETAXEL [Suspect]
     Dosage: 45 MG/M2, UNK
  2. FERROUS SULFATE TAB [Concomitant]
     Dosage: UNK
  3. DOCETAXEL [Suspect]
     Indication: OESOPHAGEAL ADENOCARCINOMA
     Dosage: 75 MG/M2, UNK
  4. CISPLATIN [Suspect]
     Indication: OESOPHAGEAL ADENOCARCINOMA
     Dosage: 75 MG/M2, UNK
  5. CISPLATIN [Suspect]
     Dosage: 35 MG/M2, UNK
  6. VITAMIN D [Concomitant]
     Dosage: UNK
  7. LORTAB [Concomitant]
     Dosage: UNK
  8. FLUOROURACIL [Suspect]
     Indication: OESOPHAGEAL ADENOCARCINOMA
     Dosage: 750 MG/M2, UNK

REACTIONS (10)
  - BODY TEMPERATURE DECREASED [None]
  - ACTIVITIES OF DAILY LIVING IMPAIRED [None]
  - PERIPHERAL COLDNESS [None]
  - MUSCULAR WEAKNESS [None]
  - SKIN EXFOLIATION [None]
  - MUCOSAL INFLAMMATION [None]
  - NEUROPATHY PERIPHERAL [None]
  - PARAESTHESIA [None]
  - HYPERAESTHESIA [None]
  - SKIN DISCOLOURATION [None]
